FAERS Safety Report 24632855 (Version 1)
Quarter: 2024Q4

REPORT INFORMATION
  Report Type: Spontaneous
  Country: US (occurrence: US)
  Receive Date: 20241118
  Receipt Date: 20241118
  Transmission Date: 20250115
  Serious: Yes (Other)
  Sender: PERRIGO
  Company Number: US-PERRIGO-24US007379

PATIENT
  Age: 23 Year
  Sex: Female
  Weight: 66.667 kg

DRUGS (2)
  1. OPILL [Suspect]
     Active Substance: NORGESTREL
     Indication: Contraception
     Dosage: 0.075 MG, QD
     Route: 048
     Dates: start: 202403, end: 20240629
  2. IBUPROFEN [Concomitant]
     Active Substance: IBUPROFEN
     Indication: Dysmenorrhoea
     Dosage: 2 TABLETS OF 200 MG, MONTHLY
     Route: 065
     Dates: end: 202406

REACTIONS (4)
  - Pregnancy on oral contraceptive [Not Recovered/Not Resolved]
  - Breast enlargement [Unknown]
  - Diarrhoea [Unknown]
  - Vomiting [Unknown]

NARRATIVE: CASE EVENT DATE: 20240601
